FAERS Safety Report 17909674 (Version 3)
Quarter: 2020Q3

REPORT INFORMATION
  Report Type: Report from Study
  Country: US (occurrence: US)
  Receive Date: 20200618
  Receipt Date: 20200917
  Transmission Date: 20201103
  Serious: No
  Sender: FDA-Public Use
  Company Number: US-SHIRE-US202019909

PATIENT
  Age: 44 Year
  Sex: Female

DRUGS (9)
  1. GATTEX [Suspect]
     Active Substance: TEDUGLUTIDE\WATER
     Indication: IMMUNODEFICIENCY
     Dosage: 0.1300 UNIT UNKNOWN, 1X/DAY:QD
     Route: 058
     Dates: start: 20190223, end: 20200610
  2. GATTEX [Suspect]
     Active Substance: TEDUGLUTIDE\WATER
     Indication: MALABSORPTION
     Dosage: 1.31 MILLIGRAM
     Route: 058
     Dates: start: 202002
  3. GATTEX [Suspect]
     Active Substance: TEDUGLUTIDE\WATER
     Indication: MALABSORPTION
     Dosage: 1.31 MILLIGRAM
     Route: 058
     Dates: start: 202002
  4. GATTEX [Suspect]
     Active Substance: TEDUGLUTIDE\WATER
     Indication: IMMUNODEFICIENCY
     Dosage: 0.1300 UNIT UNKNOWN, 1X/DAY:QD
     Route: 058
     Dates: start: 20190223, end: 20200610
  5. GATTEX [Suspect]
     Active Substance: TEDUGLUTIDE\WATER
     Indication: MALABSORPTION
     Dosage: 1.31 MILLIGRAM
     Route: 058
     Dates: start: 202002
  6. INSULIN [Concomitant]
     Active Substance: INSULIN NOS
     Indication: PRODUCT USED FOR UNKNOWN INDICATION
  7. GATTEX [Suspect]
     Active Substance: TEDUGLUTIDE\WATER
     Indication: MALABSORPTION
     Dosage: 1.31 MILLIGRAM
     Route: 058
     Dates: start: 202002
  8. GATTEX [Suspect]
     Active Substance: TEDUGLUTIDE\WATER
     Indication: IMMUNODEFICIENCY
     Dosage: 0.1300 UNIT UNKNOWN, 1X/DAY:QD
     Route: 058
     Dates: start: 20190223, end: 20200610
  9. GATTEX [Suspect]
     Active Substance: TEDUGLUTIDE\WATER
     Indication: IMMUNODEFICIENCY
     Dosage: 0.1300 UNIT UNKNOWN, 1X/DAY:QD
     Route: 058
     Dates: start: 20190223, end: 20200610

REACTIONS (6)
  - Injection site extravasation [Unknown]
  - Nausea [Unknown]
  - Stoma complication [Unknown]
  - Intentional product use issue [Unknown]
  - Wrong technique in product usage process [Unknown]
  - Vomiting [Unknown]

NARRATIVE: CASE EVENT DATE: 20200610
